FAERS Safety Report 6766437-0 (Version None)
Quarter: 2010Q2

REPORT INFORMATION
  Report Type: 
  Country: None (occurrence: None)
  Receive Date: 20100611
  Receipt Date: 20100603
  Transmission Date: 20101027
  Serious: Yes (Hospitalization)
  Sender: FDA-Public Use
  Company Number: FR-JNJFOC-20100603138

PATIENT
  Age: 73 Year
  Sex: Female

DRUGS (8)
  1. IMODIUM [Suspect]
     Indication: DRUG USE FOR UNKNOWN INDICATION
     Route: 048
  2. EFFERALGAN CODEINE [Suspect]
     Indication: DRUG USE FOR UNKNOWN INDICATION
     Route: 048
  3. COAPROVEL [Suspect]
     Indication: HYPERTENSION
     Route: 048
  4. CELEBREX [Suspect]
     Indication: ARTHRALGIA
     Route: 048
  5. ACTONEL [Suspect]
     Indication: OSTEOPOROSIS
     Route: 048
  6. TENORMIN [Concomitant]
     Route: 065
  7. KARDEGIC [Concomitant]
     Route: 065
  8. MOPRAL [Concomitant]
     Route: 065

REACTIONS (2)
  - PEMPHIGUS [None]
  - TOXIC SKIN ERUPTION [None]
